FAERS Safety Report 24446649 (Version 1)
Quarter: 2024Q4

REPORT INFORMATION
  Report Type: Spontaneous
  Country: US (occurrence: None)
  Receive Date: 20241016
  Receipt Date: 20241016
  Transmission Date: 20250115
  Serious: Yes (Hospitalization)
  Sender: Public
  Company Number: None

PATIENT
  Age: 76 Year
  Sex: Male

DRUGS (9)
  1. NUPLAZID [Suspect]
     Active Substance: PIMAVANSERIN TARTRATE
     Indication: Parkinson^s disease psychosis
     Dosage: FREQUENCY : DAILY;?
     Route: 048
     Dates: start: 20230409
  2. AMIODARONE [Concomitant]
     Active Substance: AMIODARONE
  3. BUSPIRONE [Concomitant]
     Active Substance: BUSPIRONE HYDROCHLORIDE
  4. FENOFIBRATE [Concomitant]
     Active Substance: FENOFIBRATE
  5. LANTUS [Concomitant]
     Active Substance: INSULIN GLARGINE
  6. LISINOPRIL [Concomitant]
     Active Substance: LISINOPRIL
  7. LOVASTATIN [Concomitant]
     Active Substance: LOVASTATIN
  8. MEMANTINE [Concomitant]
     Active Substance: MEMANTINE
  9. TRAZODONE [Concomitant]
     Active Substance: TRAZODONE HYDROCHLORIDE

REACTIONS (2)
  - Blood pressure increased [None]
  - Blood glucose increased [None]

NARRATIVE: CASE EVENT DATE: 20241011
